FAERS Safety Report 8161831-8 (Version None)
Quarter: 2012Q1

REPORT INFORMATION
  Report Type: 
  Country: None (occurrence: None)
  Receive Date: 20120224
  Receipt Date: 20110630
  Transmission Date: 20120608
  Serious: No
  Sender: FDA-Public Use
  Company Number: US-BRISTOL-MYERS SQUIBB COMPANY-15870421

PATIENT
  Age: 53 Year
  Sex: Male

DRUGS (1)
  1. GLUCOPHAGE [Suspect]
     Indication: GLUCOSE TOLERANCE IMPAIRED
     Dosage: INTERRUPTED GLUCOPHAGE ON 28JUN2011.
     Dates: end: 20110628

REACTIONS (7)
  - DIZZINESS [None]
  - VISION BLURRED [None]
  - TREMOR [None]
  - ABDOMINAL PAIN UPPER [None]
  - DYSGEUSIA [None]
  - ERUCTATION [None]
  - FEELING JITTERY [None]
